FAERS Safety Report 7553237-7 (Version None)
Quarter: 2011Q2

REPORT INFORMATION
  Report Type: 
  Country: None (occurrence: None)
  Receive Date: 20110617
  Receipt Date: 20110610
  Transmission Date: 20111010
  Serious: No
  Sender: FDA-Public Use
  Company Number: US-BIOGENIDEC-2010BI018409

PATIENT
  Sex: Female

DRUGS (2)
  1. BENADRYL [Concomitant]
     Indication: SLEEP DISORDER
  2. TYSABRI [Suspect]
     Indication: MULTIPLE SCLEROSIS
     Route: 042
     Dates: start: 20080818

REACTIONS (7)
  - CERVICITIS HUMAN PAPILLOMA VIRUS [None]
  - URINARY INCONTINENCE [None]
  - SEASONAL ALLERGY [None]
  - HEAD INJURY [None]
  - DRUG INEFFECTIVE [None]
  - FALL [None]
  - COSTOCHONDRITIS [None]
